FAERS Safety Report 9036910 (Version 1)
Quarter: 2013Q1

REPORT INFORMATION
  Report Type: Spontaneous
  Country: US (occurrence: None)
  Receive Date: 20130123
  Receipt Date: 20130123
  Transmission Date: 20140127
  Serious: Yes (Other)
  Sender: FDA-Public Use
  Company Number: None

PATIENT
  Age: 17 Year
  Sex: Female
  Weight: 59.9 kg

DRUGS (1)
  1. LIDOCAINE [Suspect]
     Dosage: 0.1 ML 0.1%
     Route: 058

REACTIONS (4)
  - Cardio-respiratory arrest [None]
  - Tunnel vision [None]
  - Pallor [None]
  - Paraesthesia [None]
